FAERS Safety Report 13439204 (Version 1)
Quarter: 2017Q2

REPORT INFORMATION
  Report Type: Spontaneous
  Country: BR (occurrence: BR)
  Receive Date: 20170412
  Receipt Date: 20170412
  Transmission Date: 20170830
  Serious: Yes (Other)
  Sender: FDA-Public Use
  Company Number: BR-AMGEN-BRASP2017055540

PATIENT
  Age: 44 Year
  Sex: Female

DRUGS (1)
  1. ENBREL [Suspect]
     Active Substance: ETANERCEPT
     Indication: PRODUCT USED FOR UNKNOWN INDICATION
     Dosage: UNK
     Route: 065
     Dates: start: 20170112

REACTIONS (8)
  - Nausea [Unknown]
  - Injection site vesicles [Unknown]
  - Injection site haemorrhage [Unknown]
  - Chronic hepatitis B [Recovered/Resolved]
  - Injection site pain [Unknown]
  - Injection site inflammation [Unknown]
  - Pain in extremity [Unknown]
  - Injection site nodule [Unknown]

NARRATIVE: CASE EVENT DATE: 2017
